FAERS Safety Report 23332284 (Version 3)
Quarter: 2024Q2

REPORT INFORMATION
  Report Type: Report from Study
  Country: GB (occurrence: GB)
  Receive Date: 20231222
  Receipt Date: 20240613
  Transmission Date: 20240716
  Serious: Yes (Other)
  Sender: FDA-Public Use
  Company Number: GB-SANDOZ-SDZ2023GB071042

PATIENT
  Age: 69 Year
  Sex: Male

DRUGS (2)
  1. HYRIMOZ [Suspect]
     Active Substance: ADALIMUMAB-ADAZ
     Dosage: 40 MG, Q2W (HYRIMOZ 40MG/0.4ML SOLUTION FOR INJECTION PRE-FILLED PENS)
     Route: 058
     Dates: end: 202404
  2. HYRIMOZ [Suspect]
     Active Substance: ADALIMUMAB-ADAZ
     Indication: Psoriasis
     Dosage: 40 MG, Q2W (HYRIMOZ 40MG/0.8ML SOLUTION FOR INJECTION PRE-FILLED PENS)
     Route: 058

REACTIONS (3)
  - Renal neoplasm [Unknown]
  - Renal tumour excision [Unknown]
  - Lower respiratory tract infection [Unknown]

NARRATIVE: CASE EVENT DATE: 20240403
